FAERS Safety Report 20837166 (Version 2)
Quarter: 2022Q2

REPORT INFORMATION
  Report Type: Spontaneous
  Country: US (occurrence: US)
  Receive Date: 20220517
  Receipt Date: 20220616
  Transmission Date: 20220721
  Serious: Yes (Hospitalization, Other)
  Sender: FDA-Public Use
  Company Number: US-BIOCODEX2-2022000422

PATIENT

DRUGS (6)
  1. DIACOMIT [Suspect]
     Active Substance: STIRIPENTOL
     Indication: Epilepsy
     Dosage: 1500MG DAILY
     Dates: start: 20200625
  2. DIACOMIT [Suspect]
     Active Substance: STIRIPENTOL
     Indication: Product use in unapproved indication
     Dosage: 1500MG DAILY
     Dates: start: 20200625
  3. ONFI [Concomitant]
     Active Substance: CLOBAZAM
     Indication: Epilepsy
  4. EPIDIOLEX [Concomitant]
     Active Substance: CANNABIDIOL
     Indication: Product used for unknown indication
  5. KEPPRA [Concomitant]
     Active Substance: LEVETIRACETAM
     Indication: Product used for unknown indication
  6. PHENOBARBITAL [Concomitant]
     Active Substance: PHENOBARBITAL
     Indication: Product used for unknown indication

REACTIONS (2)
  - Seizure [Unknown]
  - Product use in unapproved indication [Unknown]
